FAERS Safety Report 4360497-2 (Version None)
Quarter: 2004Q2

REPORT INFORMATION
  Report Type: 
  Country: None (occurrence: None)
  Receive Date: 20040514
  Receipt Date: 20040429
  Transmission Date: 20050107
  Serious: Yes (Hospitalization, Other)
  Sender: FDA-Public Use
  Company Number: 04-066

PATIENT
  Sex: Male

DRUGS (1)
  1. BETAINE, SPECIAL PRODUCTS, SURREY, UK [Suspect]
     Indication: HOMOCYSTINURIA
     Dosage: 3 G PER DAY

REACTIONS (8)
  - BRADYCARDIA [None]
  - BRAIN OEDEMA [None]
  - DEPRESSED LEVEL OF CONSCIOUSNESS [None]
  - HEADACHE [None]
  - HYPERTENSION [None]
  - NUCLEAR MAGNETIC RESONANCE IMAGING BRAIN ABNORMAL [None]
  - PAPILLOEDEMA [None]
  - VOMITING [None]
